FAERS Safety Report 12825724 (Version 1)
Quarter: 2016Q4

REPORT INFORMATION
  Report Type: Spontaneous
  Country: US (occurrence: US)
  Receive Date: 20161007
  Receipt Date: 20161007
  Transmission Date: 20170207
  Serious: No
  Sender: FDA-Public Use
  Company Number: US-INDIVIOR LIMITED-INDV-091681-2016

PATIENT
  Age: 0 Day
  Sex: Male
  Weight: 3.16 kg

DRUGS (6)
  1. CLONAZEPAM. [Suspect]
     Active Substance: CLONAZEPAM
     Indication: ANXIETY
     Dosage: 1.5 MG DAILY
     Route: 064
     Dates: end: 20160526
  2. FERROUS SULFATE. [Suspect]
     Active Substance: FERROUS SULFATE
     Indication: ANAEMIA
     Dosage: 650 MG DAILY
     Route: 064
     Dates: start: 20151217, end: 20160526
  3. SUBUTEX [Suspect]
     Active Substance: BUPRENORPHINE HYDROCHLORIDE
     Indication: DRUG DEPENDENCE
     Dosage: 12 MG, DAILY
     Route: 064
     Dates: end: 20160526
  4. NICOTINE. [Suspect]
     Active Substance: NICOTINE
     Indication: SMOKING CESSATION THERAPY
     Dosage: 4-12 CARTRIDGES DAILY
     Route: 064
     Dates: start: 20160302, end: 20160303
  5. PRENATAL VITAMINS                  /02014401/ [Suspect]
     Active Substance: VITAMINS
     Indication: PREGNANCY
     Dosage: UNK
     Route: 064
     Dates: start: 20151123, end: 20160526
  6. MARIJUANA [Suspect]
     Active Substance: CANNABIS SATIVA SUBSP. INDICA TOP
     Indication: PRODUCT USED FOR UNKNOWN INDICATION
     Dosage: UNK
     Route: 064

REACTIONS (2)
  - Foetal exposure during pregnancy [Recovered/Resolved]
  - Medical observation [Recovered/Resolved]

NARRATIVE: CASE EVENT DATE: 20160526
